FAERS Safety Report 13817666 (Version 2)
Quarter: 2017Q3

REPORT INFORMATION
  Report Type: Spontaneous
  Country: US (occurrence: US)
  Receive Date: 20170731
  Receipt Date: 20170905
  Transmission Date: 20171127
  Serious: Yes (Other)
  Sender: FDA-Public Use
  Company Number: US-INTERPRAG-PM-OCA2017-00681

PATIENT

DRUGS (2)
  1. OCALIVA [Suspect]
     Active Substance: OBETICHOLIC ACID
     Indication: BILIARY CIRRHOSIS PRIMARY
     Dosage: 5 MG, QD
     Route: 048
  2. URSODIOL. [Concomitant]
     Active Substance: URSODIOL

REACTIONS (5)
  - Blood alkaline phosphatase increased [Unknown]
  - Confusional state [Unknown]
  - Aspartate aminotransferase increased [Unknown]
  - Drug ineffective [Unknown]
  - Alanine aminotransferase increased [Unknown]
